FAERS Safety Report 6931572-0 (Version None)
Quarter: 2010Q3

REPORT INFORMATION
  Report Type: 
  Country: None (occurrence: None)
  Receive Date: 20100819
  Receipt Date: 20100805
  Transmission Date: 20110219
  Serious: Yes (Other)
  Sender: FDA-Public Use
  Company Number: US-ELI_LILLY_AND_COMPANY-US201008002932

PATIENT
  Sex: Female

DRUGS (5)
  1. FORTEO [Suspect]
     Indication: SPINAL FRACTURE
     Dosage: 20 UG, DAILY (1/D)
     Dates: start: 20100101
  2. FORTEO [Suspect]
     Dosage: 20 UG, DAILY (1/D)
  3. LESCOL [Concomitant]
  4. ANTIHYPERTENSIVES [Concomitant]
  5. PEPCID [Concomitant]

REACTIONS (5)
  - LYMPHADENOPATHY [None]
  - NIGHT SWEATS [None]
  - NON-HODGKIN'S LYMPHOMA [None]
  - PAIN [None]
  - WEIGHT DECREASED [None]
